FAERS Safety Report 12212820 (Version 1)
Quarter: 2016Q1

REPORT INFORMATION
  Report Type: Report from Study
  Country: JP (occurrence: JP)
  Receive Date: 20160328
  Receipt Date: 20160328
  Transmission Date: 20160526
  Serious: Yes (Other)
  Sender: FDA-Public Use
  Company Number: JP-ROCHE-1665696

PATIENT

DRUGS (2)
  1. CAPECITABINE. [Suspect]
     Active Substance: CAPECITABINE
     Indication: RECTAL CANCER
     Dosage: DIVIDED INTO 2 SPLIT DAILY DOSES FOR 14 DAYS FOLLOWED BY 7 DAYS OF REST, REPEATED EVERY 3 WEEKS.
     Route: 048
  2. OXALIPLATIN. [Suspect]
     Active Substance: OXALIPLATIN
     Indication: RECTAL CANCER
     Route: 065

REACTIONS (13)
  - Pancytopenia [Unknown]
  - Leukopenia [Unknown]
  - Alanine aminotransferase abnormal [Unknown]
  - Nausea [Unknown]
  - Neutropenia [Unknown]
  - Thrombocytopenia [Unknown]
  - Neuropathy peripheral [Unknown]
  - Vomiting [Unknown]
  - Fatigue [Unknown]
  - Decreased appetite [Unknown]
  - Febrile neutropenia [Unknown]
  - Aspartate aminotransferase abnormal [Unknown]
  - Diarrhoea [Unknown]
